FAERS Safety Report 13896772 (Version 1)
Quarter: 2017Q3

REPORT INFORMATION
  Report Type: Spontaneous
  Country: US (occurrence: None)
  Receive Date: 20170822
  Receipt Date: 20170822
  Transmission Date: 20171127
  Serious: Yes (Hospitalization)
  Sender: FDA-Public Use
  Company Number: None

PATIENT
  Age: 83 Year
  Sex: Female
  Weight: 76.3 kg

DRUGS (1)
  1. BACTRIM [Suspect]
     Active Substance: SULFAMETHOXAZOLE\TRIMETHOPRIM
     Dates: start: 20150318, end: 20150324

REACTIONS (5)
  - Fatigue [None]
  - Blood bilirubin increased [None]
  - Smooth muscle antibody positive [None]
  - Drug-induced liver injury [None]
  - Hepatic enzyme increased [None]

NARRATIVE: CASE EVENT DATE: 20150327
